FAERS Safety Report 9774953 (Version 1)
Quarter: 2013Q4

REPORT INFORMATION
  Report Type: Spontaneous
  Country: US (occurrence: US)
  Receive Date: 20131220
  Receipt Date: 20131220
  Transmission Date: 20140711
  Serious: No
  Sender: FDA-Public Use
  Company Number: US-GLAXOSMITHKLINE-A1022862A

PATIENT
  Age: 60 Year
  Sex: Female

DRUGS (5)
  1. AVODART [Suspect]
     Indication: ALOPECIA
     Dosage: .5MG PER DAY
     Route: 048
     Dates: start: 20130501
  2. UNSPECIFIED INGREDIENT [Concomitant]
  3. BENADRYL [Concomitant]
  4. TRAZODONE [Concomitant]
  5. KLONOPIN [Concomitant]

REACTIONS (9)
  - Constipation [Unknown]
  - Dry mouth [Unknown]
  - Amnesia [Unknown]
  - Breast tenderness [Unknown]
  - Fatigue [Unknown]
  - Restlessness [Unknown]
  - Alopecia [Unknown]
  - Therapeutic response unexpected [Unknown]
  - Off label use [Not Recovered/Not Resolved]
